FAERS Safety Report 24245068 (Version 3)
Quarter: 2024Q3

REPORT INFORMATION
  Report Type: Spontaneous
  Country: AR (occurrence: AR)
  Receive Date: 20240823
  Receipt Date: 20240905
  Transmission Date: 20241016
  Serious: Yes (Hospitalization)
  Sender: BIOMARIN
  Company Number: AR-BIOMARINAP-AR-2024-160042

PATIENT

DRUGS (1)
  1. VIMIZIM [Suspect]
     Active Substance: ELOSULFASE ALFA
     Indication: Mucopolysaccharidosis IV
     Dosage: 2 MILLIGRAM/KILOGRAM, QW
     Route: 042

REACTIONS (13)
  - Pneumonia [Recovering/Resolving]
  - Asthma [Recovering/Resolving]
  - Pharyngeal erythema [Recovering/Resolving]
  - Pain [Recovering/Resolving]
  - Oropharyngeal pain [Recovering/Resolving]
  - Pallor [Recovering/Resolving]
  - Agitation [Recovering/Resolving]
  - Cold sweat [Recovering/Resolving]
  - Oxygen saturation decreased [Recovering/Resolving]
  - Nasal flaring [Recovering/Resolving]
  - Fatigue [Recovering/Resolving]
  - Taciturnity [Recovering/Resolving]
  - Use of accessory respiratory muscles [Recovering/Resolving]

NARRATIVE: CASE EVENT DATE: 20240819
